FAERS Safety Report 23182330 (Version 1)
Quarter: 2023Q4

REPORT INFORMATION
  Report Type: Spontaneous
  Country: US (occurrence: None)
  Receive Date: 20231114
  Receipt Date: 20231114
  Transmission Date: 20240109
  Serious: Yes (Hospitalization)
  Sender: FDA-Public Use
  Company Number: US-ROCHE-3453979

PATIENT

DRUGS (2)
  1. ALECENSA [Suspect]
     Active Substance: ALECTINIB HYDROCHLORIDE
     Indication: Lung neoplasm malignant
     Route: 065
  2. LORLATINIB [Suspect]
     Active Substance: LORLATINIB
     Indication: Lung neoplasm malignant
     Route: 065

REACTIONS (6)
  - Hepatic cancer [Unknown]
  - Pancreatic carcinoma [Unknown]
  - Fatigue [Unknown]
  - Weight decreased [Unknown]
  - Hypogeusia [Unknown]
  - Decreased appetite [Unknown]
